FAERS Safety Report 13428291 (Version 2)
Quarter: 2017Q2

REPORT INFORMATION
  Report Type: Spontaneous
  Country: IT (occurrence: IT)
  Receive Date: 20170411
  Receipt Date: 20170425
  Transmission Date: 20170830
  Serious: Yes (Other)
  Sender: FDA-Public Use
  Company Number: IT-PFIZER INC-2017152746

PATIENT
  Age: 42 Year
  Sex: Female

DRUGS (3)
  1. KOLIBRI [Suspect]
     Active Substance: ACETAMINOPHEN\TRAMADOL HYDROCHLORIDE
     Indication: INTERVERTEBRAL DISC DISORDER
     Dosage: UNK
     Dates: start: 20170404, end: 20170404
  2. MEDROL [Suspect]
     Active Substance: METHYLPREDNISOLONE
     Indication: INTERVERTEBRAL DISC DISORDER
     Dosage: UNK
  3. NICETILE [Suspect]
     Active Substance: ACETYLCARNITINE HYDROCHLORIDE
     Indication: INTERVERTEBRAL DISC DISORDER
     Dosage: UNK

REACTIONS (6)
  - Nausea [Recovering/Resolving]
  - Vertigo [Recovering/Resolving]
  - Confusional state [Recovering/Resolving]
  - Abdominal pain upper [Recovering/Resolving]
  - Asthenia [Recovering/Resolving]
  - Pain [Recovering/Resolving]

NARRATIVE: CASE EVENT DATE: 20170404
